FAERS Safety Report 23472380 (Version 1)
Quarter: 2024Q1

REPORT INFORMATION
  Report Type: Spontaneous
  Country: US (occurrence: US)
  Receive Date: 20240202
  Receipt Date: 20240202
  Transmission Date: 20240410
  Serious: No
  Sender: FDA-Public Use
  Company Number: US-Calliditas-2024CAL00117

PATIENT
  Age: 45 Year
  Sex: Female

DRUGS (1)
  1. TARPEYO [Suspect]
     Active Substance: BUDESONIDE
     Indication: Product used for unknown indication
     Route: 048
     Dates: end: 202311

REACTIONS (3)
  - Weight increased [Unknown]
  - Muscle spasms [Unknown]
  - Nightmare [Unknown]

NARRATIVE: CASE EVENT DATE: 20230101
